FAERS Safety Report 6696196-1 (Version None)
Quarter: 2010Q2

REPORT INFORMATION
  Report Type: 
  Country: None (occurrence: None)
  Receive Date: 20100426
  Receipt Date: 20100412
  Transmission Date: 20101027
  Serious: Yes (Hospitalization, Other)
  Sender: FDA-Public Use
  Company Number: US-ASTRAZENECA-2008UW13480

PATIENT
  Age: 46 Year
  Sex: Male
  Weight: 140.2 kg

DRUGS (15)
  1. SEROQUEL [Suspect]
     Indication: DEPRESSION
     Route: 048
     Dates: start: 20070524
  2. SEROQUEL [Suspect]
     Indication: BIPOLAR DISORDER
     Route: 048
     Dates: start: 20070524
  3. SEROQUEL [Suspect]
     Route: 048
     Dates: start: 20070601, end: 20080623
  4. SEROQUEL [Suspect]
     Route: 048
     Dates: start: 20070601, end: 20080623
  5. ROPINIROLE [Concomitant]
  6. TORSEMIDE [Concomitant]
  7. LYRICA [Concomitant]
  8. MIRAPEX [Concomitant]
  9. CARVEDILOL [Concomitant]
  10. TRAZODONE HCL [Concomitant]
  11. KLOR-CON [Concomitant]
  12. LUNESTA [Concomitant]
  13. PLAVIX [Concomitant]
  14. PROMETHAZINE [Concomitant]
  15. NOVOLIN [Concomitant]

REACTIONS (3)
  - DIABETES MELLITUS [None]
  - NEUROPATHY PERIPHERAL [None]
  - WEIGHT INCREASED [None]
